FAERS Safety Report 18279958 (Version 1)
Quarter: 2020Q3

REPORT INFORMATION
  Report Type: Report from Study
  Country: US (occurrence: US)
  Receive Date: 20200917
  Receipt Date: 20200917
  Transmission Date: 20201103
  Serious: Yes (Hospitalization, Other)
  Sender: FDA-Public Use
  Company Number: US-JNJFOC-A-NJ2019-193392

PATIENT
  Age: 57 Year
  Sex: Female
  Weight: 88.53 kg

DRUGS (4)
  1. VELETRI [Suspect]
     Active Substance: EPOPROSTENOL
     Indication: PULMONARY HYPERTENSION
     Dosage: 14 NG/KG, PER MIN
     Route: 042
  2. MELATONIN [Concomitant]
     Active Substance: MELATONIN
  3. WARFARIN [Concomitant]
     Active Substance: WARFARIN
  4. REVATIO [Concomitant]
     Active Substance: SILDENAFIL CITRATE

REACTIONS (9)
  - Dyspnoea exertional [Not Recovered/Not Resolved]
  - Flushing [Unknown]
  - Catheter site infection [Unknown]
  - Catheter site pain [Unknown]
  - Atrial fibrillation [Recovered/Resolved]
  - Catheter site erythema [Unknown]
  - Catheter site nodule [Not Recovered/Not Resolved]
  - Pneumonia [Unknown]
  - Insomnia [Unknown]
